FAERS Safety Report 8439847-3 (Version None)
Quarter: 2012Q2

REPORT INFORMATION
  Report Type: 
  Country: None (occurrence: None)
  Receive Date: 20120611
  Receipt Date: 20120611
  Transmission Date: 20120825
  Serious: Yes (Life-Threatening)
  Sender: FDA-Public Use
  Company Number: None

PATIENT
  Sex: Male
  Weight: 83.7 kg

DRUGS (2)
  1. TEMOZOLOMIDE [Suspect]
     Indication: GLIOBLASTOMA
     Dosage: 300 MG, DAILY, PO
     Route: 048
     Dates: start: 20120428, end: 20120518
  2. ABT-888, 40 MG, ABOTT LAB [Suspect]
     Indication: GLIOBLASTOMA
     Dosage: 40 MG, BID, PO
     Route: 048
     Dates: start: 20120428, end: 20120518

REACTIONS (1)
  - PANCYTOPENIA [None]
